FAERS Safety Report 9739969 (Version 1)
Quarter: 2013Q4

REPORT INFORMATION
  Report Type: Spontaneous
  Country: US (occurrence: US)
  Receive Date: 20131209
  Receipt Date: 20131209
  Transmission Date: 20140711
  Serious: No
  Sender: FDA-Public Use
  Company Number: US-ASTELLAS-2013US012523

PATIENT
  Age: 66 Year
  Sex: Male

DRUGS (1)
  1. XTANDI [Suspect]
     Indication: BONE CANCER
     Dosage: 160 MG, UID/QD
     Route: 048
     Dates: start: 201306, end: 201311

REACTIONS (3)
  - Off label use [Unknown]
  - Back pain [Recovering/Resolving]
  - Memory impairment [Recovering/Resolving]
